FAERS Safety Report 5187951-8 (Version None)
Quarter: 2006Q4

REPORT INFORMATION
  Report Type: 
  Country: None (occurrence: None)
  Receive Date: 20061220
  Receipt Date: 20061220
  Transmission Date: 20070319
  Serious: Yes (Other)
  Sender: FDA-Public Use
  Company Number: None

PATIENT
  Age: 65 Year

DRUGS (1)
  1. BRIMONIDINE TARTRATE [Suspect]
     Indication: GLAUCOMA
     Dosage: OPHTHALMIC;;0;0
     Route: 047
     Dates: start: 20060519, end: 20060520

REACTIONS (2)
  - APPLICATION SITE SWELLING [None]
  - EYE SWELLING [None]
